FAERS Safety Report 7357743-X (Version None)
Quarter: 2011Q1

REPORT INFORMATION
  Report Type: 
  Country: None (occurrence: None)
  Receive Date: 20110309
  Receipt Date: 20110302
  Transmission Date: 20110831
  Serious: Yes (Life-Threatening, Hospitalization)
  Sender: FDA-Public Use
  Company Number: 1000019035

PATIENT
  Age: 57 Year
  Sex: Male
  Weight: 56 kg

DRUGS (5)
  1. ROFLUMILAST (ROFLUMILAST) (500 MICROGRAMS, TABLETS) [Suspect]
     Indication: CHRONIC OBSTRUCTIVE PULMONARY DISEASE
     Dosage: 500 MCG (500 MCG, 1 IN 1 D), ORAL
     Route: 048
     Dates: start: 20101116, end: 20101130
  2. SPIRIVA (TIOTROPIUM BROMIDE) (TIOTROPIUM BROMIDE) [Concomitant]
  3. VIANI FORTE (FLUTICASONE, SALMETEROL) (FLUTICASONE SALMETEROL) [Concomitant]
  4. OXYGEN (OXYGEN) (OXYGEN) [Concomitant]
  5. OMEPRAZOLE [Concomitant]

REACTIONS (3)
  - PNEUMONIA [None]
  - RESUSCITATION [None]
  - ACUTE RESPIRATORY FAILURE [None]
